FAERS Safety Report 5420136-6 (Version None)
Quarter: 2007Q3

REPORT INFORMATION
  Report Type: 
  Country: None (occurrence: None)
  Receive Date: 20070820
  Receipt Date: 20070810
  Transmission Date: 20080115
  Serious: Yes (Other)
  Sender: FDA-Public Use
  Company Number: US-PFIZER INC-2007067191

PATIENT
  Sex: Female
  Weight: 60.8 kg

DRUGS (6)
  1. DETROL LA [Interacting]
     Indication: URINARY INCONTINENCE
  2. TOPROL-XL [Interacting]
     Indication: BLOOD PRESSURE
  3. BENICAR [Suspect]
     Indication: BLOOD PRESSURE
  4. INDERAL [Interacting]
     Indication: BLOOD PRESSURE
  5. BETA BLOCKING AGENTS [Interacting]
     Indication: BLOOD PRESSURE
  6. ANTIHYPERTENSIVES [Suspect]
     Indication: BLOOD PRESSURE

REACTIONS (9)
  - ANAPHYLACTIC REACTION [None]
  - BLOOD PRESSURE INCREASED [None]
  - CHILLS [None]
  - DRUG INTERACTION [None]
  - GAIT DISTURBANCE [None]
  - PARAESTHESIA [None]
  - PHAEOCHROMOCYTOMA [None]
  - SPEECH DISORDER [None]
  - TREMOR [None]
